FAERS Safety Report 21779157 (Version 1)
Quarter: 2022Q4

REPORT INFORMATION
  Report Type: Report from Study
  Country: US (occurrence: US)
  Receive Date: 20221226
  Receipt Date: 20221226
  Transmission Date: 20230113
  Serious: Yes (Other)
  Sender: FDA-Public Use
  Company Number: US-002147023-NVSC2022US295989

PATIENT
  Age: 70 Year
  Sex: Male

DRUGS (1)
  1. GILENYA [Suspect]
     Active Substance: FINGOLIMOD HYDROCHLORIDE
     Indication: Multiple sclerosis relapse
     Dosage: 0.5 MG, QD
     Route: 048
     Dates: start: 20190301

REACTIONS (5)
  - Multiple fractures [Unknown]
  - Delirium [Unknown]
  - Fall [Unknown]
  - Dysstasia [Unknown]
  - Gait disturbance [Unknown]

NARRATIVE: CASE EVENT DATE: 20221221
